FAERS Safety Report 5024924-X (Version None)
Quarter: 2006Q2

REPORT INFORMATION
  Report Type: 
  Country: None (occurrence: None)
  Receive Date: 20060607
  Receipt Date: 20060524
  Transmission Date: 20061013
  Serious: Yes (Hospitalization)
  Sender: FDA-Public Use
  Company Number: 2006PV013719

PATIENT
  Age: 63 Year
  Sex: Female
  Weight: 99.7913 kg

DRUGS (13)
  1. BYETTA [Suspect]
     Indication: DIABETES MELLITUS NON-INSULIN-DEPENDENT
     Dosage: 5 MCG; BID; SC; SEE IMAGE
     Route: 058
     Dates: start: 20060301, end: 20060301
  2. BYETTA [Suspect]
     Indication: DIABETES MELLITUS NON-INSULIN-DEPENDENT
     Dosage: 5 MCG; BID; SC; SEE IMAGE
     Route: 058
     Dates: start: 20060401, end: 20060401
  3. BYETTA [Suspect]
     Indication: DIABETES MELLITUS NON-INSULIN-DEPENDENT
     Dosage: 5 MCG; BID; SC; SEE IMAGE
     Route: 058
     Dates: start: 20060510
  4. TRIAMTERENE [Concomitant]
  5. HYDROCHLOROTHIAZIDE (3.5/25) [Concomitant]
  6. ASPIRIN [Concomitant]
  7. BENAZEPRIL HYDROCHLORIDE [Concomitant]
  8. LIPITOR [Concomitant]
  9. SINGULAIR [Concomitant]
  10. AVANDIA [Concomitant]
  11. GLYBURIDE/METFORMIN (5/500) [Concomitant]
  12. TRICOR [Concomitant]
  13. CRESTOR [Concomitant]

REACTIONS (9)
  - ABDOMINAL DISCOMFORT [None]
  - APHAGIA [None]
  - CONDITION AGGRAVATED [None]
  - CONSTIPATION [None]
  - DIVERTICULITIS [None]
  - DIVERTICULUM [None]
  - HYPOKINESIA [None]
  - NAUSEA [None]
  - WHITE BLOOD CELL COUNT INCREASED [None]
